FAERS Safety Report 9692932 (Version 1)
Quarter: 2013Q4

REPORT INFORMATION
  Report Type: Spontaneous
  Country: US (occurrence: US)
  Receive Date: 20131118
  Receipt Date: 20131118
  Transmission Date: 20140711
  Serious: No
  Sender: FDA-Public Use
  Company Number: US-GLAXOSMITHKLINE-A1014175A

PATIENT
  Age: 67 Year
  Sex: Female

DRUGS (3)
  1. COREG CR [Suspect]
     Indication: HYPERTENSION
     Dosage: 40MG PER DAY
     Route: 048
     Dates: start: 201208
  2. ZETIA [Concomitant]
  3. TRAVATAN [Concomitant]

REACTIONS (7)
  - Nasal congestion [Not Recovered/Not Resolved]
  - Rhinorrhoea [Unknown]
  - Hyposmia [Unknown]
  - Hypogeusia [Unknown]
  - Alopecia [Unknown]
  - Joint swelling [Unknown]
  - Madarosis [Unknown]
